FAERS Safety Report 7227603-3 (Version None)
Quarter: 2011Q1

REPORT INFORMATION
  Report Type: 
  Country: None (occurrence: None)
  Receive Date: 20110114
  Receipt Date: 20110105
  Transmission Date: 20110831
  Serious: Yes (Hospitalization, Congenital Anomaly)
  Sender: FDA-Public Use
  Company Number: US-US-EMD SERONO, INC.-7034628

PATIENT
  Sex: Female
  Weight: 3 kg

DRUGS (1)
  1. REBIF [Suspect]
     Route: 064

REACTIONS (3)
  - BACTERAEMIA [None]
  - TALIPES [None]
  - DRUG EXPOSURE DURING PREGNANCY [None]
